FAERS Safety Report 8092861-2 (Version None)
Quarter: 2012Q1

REPORT INFORMATION
  Report Type: 
  Country: None (occurrence: None)
  Receive Date: 20120128
  Receipt Date: 20110726
  Transmission Date: 20120608
  Serious: No
  Sender: FDA-Public Use
  Company Number: US-ABBOTT-11P-163-0841807-00

PATIENT
  Age: 55 Year
  Sex: Female

DRUGS (4)
  1. NEURONTIN [Concomitant]
     Indication: BIPOLAR DISORDER
     Dosage: UP TO 4 PILLS A DAY
     Dates: start: 20070101
  2. BUSPAR [Concomitant]
     Indication: PRODUCT USED FOR UNKNOWN INDICATION
  3. AMITRIPTYLINE HCL [Concomitant]
     Indication: PRODUCT USED FOR UNKNOWN INDICATION
     Dosage: 3 PILLS AT NIGHT
  4. HUMIRA [Suspect]
     Indication: PSORIATIC ARTHROPATHY
     Dates: start: 20110101

REACTIONS (8)
  - INCREASED TENDENCY TO BRUISE [None]
  - INJECTION SITE PAIN [None]
  - UNEVALUABLE EVENT [None]
  - PAIN IN EXTREMITY [None]
  - NECK PAIN [None]
  - FATIGUE [None]
  - SOMNOLENCE [None]
  - INJECTION SITE HAEMATOMA [None]
